FAERS Safety Report 14192879 (Version 1)
Quarter: 2017Q4

REPORT INFORMATION
  Report Type: Spontaneous
  Country: US (occurrence: US)
  Receive Date: 20171115
  Receipt Date: 20171115
  Transmission Date: 20180321
  Serious: No
  Sender: FDA-Public Use
  Company Number: US-SYNERGY PHARMACEUTICALS INC-US-2017SNG000230

PATIENT

DRUGS (14)
  1. OMEPRAZOLE. [Concomitant]
     Active Substance: OMEPRAZOLE
     Indication: DYSPEPSIA
     Dosage: 20 MG, QD
     Route: 048
  2. OMEPRAZOLE. [Concomitant]
     Active Substance: OMEPRAZOLE
     Indication: GASTROOESOPHAGEAL REFLUX DISEASE
  3. ZANAFLEX [Concomitant]
     Active Substance: TIZANIDINE HYDROCHLORIDE
     Indication: MUSCLE RELAXANT THERAPY
     Dosage: 4 MG, QID
     Route: 048
  4. OXYCODONE [Concomitant]
     Active Substance: OXYCODONE
     Indication: PAIN
     Dosage: 30 MG, 5 TIMES DAILY
     Route: 048
  5. TYLENOL [Concomitant]
     Active Substance: ACETAMINOPHEN
     Indication: ARTHRALGIA
     Dosage: 600 MG, QD AS NEEDED
     Route: 048
  6. LIDOCAINE                          /00033402/ [Concomitant]
     Active Substance: LIDOCAINE
     Indication: BACK PAIN
  7. TRULANCE [Suspect]
     Active Substance: PLECANATIDE
     Indication: CONSTIPATION
     Dosage: 3 MG, QD
     Route: 048
     Dates: start: 2017
  8. MARINOL                            /00003301/ [Concomitant]
     Indication: DECREASED APPETITE
     Dosage: 10 MG, QD
     Route: 048
  9. TAMSULOSIN [Concomitant]
     Active Substance: TAMSULOSIN
     Indication: POLLAKIURIA
     Dosage: 0.4 MG, QD
     Route: 048
  10. FENTANYL. [Concomitant]
     Active Substance: FENTANYL
     Indication: PAIN
     Dosage: 100 MCG,1 PATCH EVERY 48 HOURS
     Route: 062
  11. CLONAZEPAM. [Concomitant]
     Active Substance: CLONAZEPAM
     Indication: TREMOR
     Dosage: 1 MG, HALF TABLET IN THE MONRING, LUNCH, AND DINNER
  12. LIDOCAINE                          /00033402/ [Concomitant]
     Active Substance: LIDOCAINE
     Indication: NECK PAIN
     Dosage: UNK
     Route: 061
  13. CLONAZEPAM. [Concomitant]
     Active Substance: CLONAZEPAM
     Dosage: 1.5 UNK, AT NIGHT
  14. PROBIOTIC                          /06395501/ [Concomitant]
     Active Substance: BIFIDOBACTERIUM ANIMALIS LACTIS
     Indication: CONSTIPATION
     Dosage: UNK, QD

REACTIONS (3)
  - Faecal volume increased [Not Recovered/Not Resolved]
  - Abdominal pain lower [Not Recovered/Not Resolved]
  - Muscle spasms [Not Recovered/Not Resolved]

NARRATIVE: CASE EVENT DATE: 2017
